FAERS Safety Report 24545640 (Version 1)
Quarter: 2024Q4

REPORT INFORMATION
  Report Type: Spontaneous
  Country: US (occurrence: US)
  Receive Date: 20241024
  Receipt Date: 20241024
  Transmission Date: 20250115
  Serious: No
  Sender: PFIZER
  Company Number: US-PFIZER INC-202400284438

PATIENT
  Age: 61 Year
  Sex: Female

DRUGS (1)
  1. IBRANCE [Suspect]
     Active Substance: PALBOCICLIB
     Dosage: 125MG TABLETS - 1 TABLET BY MOUTH DAILY ON DAYS 1 THROUGH 21 OF A 28-DAY CYCLE

REACTIONS (1)
  - Full blood count decreased [Unknown]
